FAERS Safety Report 13135390 (Version 2)
Quarter: 2017Q1

REPORT INFORMATION
  Report Type: Report from Study
  Country: US (occurrence: US)
  Receive Date: 20170120
  Receipt Date: 20170329
  Transmission Date: 20170428
  Serious: Yes (Other)
  Sender: FDA-Public Use
  Company Number: PHHO2017US000840

PATIENT
  Age: 55 Year
  Sex: Male
  Weight: 80.7 kg

DRUGS (3)
  1. KEFLEX [Concomitant]
     Active Substance: CEPHALEXIN
     Indication: PRODUCT USED FOR UNKNOWN INDICATION
     Dosage: UNK
     Route: 065
     Dates: start: 20170301
  2. HYDROCHLOROTHIAZIDE. [Concomitant]
     Active Substance: HYDROCHLOROTHIAZIDE
     Indication: PRODUCT USED FOR UNKNOWN INDICATION
     Dosage: UNK
     Route: 065
     Dates: start: 20170301
  3. AFINITOR [Suspect]
     Active Substance: EVEROLIMUS
     Indication: PROSTATE CANCER
     Dosage: 10 MG, QD
     Route: 048
     Dates: start: 20160128, end: 20160404

REACTIONS (1)
  - Penile swelling [Not Recovered/Not Resolved]

NARRATIVE: CASE EVENT DATE: 20170103
